FAERS Safety Report 15807824 (Version 1)
Quarter: 2018Q4

REPORT INFORMATION
  Report Type: Spontaneous
  Country: US (occurrence: US)
  Receive Date: 20181214
  Receipt Date: 20181214
  Transmission Date: 20190205
  Serious: No
  Sender: FDA-Public Use
  Company Number: None

PATIENT
  Age: 44 Year
  Sex: Female

DRUGS (2)
  1. MYCOPHENOLATE MOFETIL CAP 250MG [Suspect]
     Active Substance: MYCOPHENOLATE MOFETIL
     Dates: start: 201810
  2. TACROLIMUS. [Concomitant]
     Active Substance: TACROLIMUS

REACTIONS (5)
  - Weight decreased [None]
  - Diarrhoea [None]
  - Constipation [None]
  - Nausea [None]
  - Influenza like illness [None]

NARRATIVE: CASE EVENT DATE: 20181213
